FAERS Safety Report 9344242 (Version 1)
Quarter: 2013Q2

REPORT INFORMATION
  Report Type: Spontaneous
  Country: US (occurrence: None)
  Receive Date: 20130610
  Receipt Date: 20130610
  Transmission Date: 20140414
  Serious: Yes (Life-Threatening, Other)
  Sender: FDA-Public Use
  Company Number: 001545635A

PATIENT
  Age: 15 Year
  Sex: Female

DRUGS (3)
  1. PROACTIV RENEWING CLEANSER [Suspect]
     Indication: ACNE
     Dosage: DERMAL
     Dates: start: 20130416, end: 20130423
  2. PROACTIV [Suspect]
     Indication: ACNE
     Dosage: DERMAL
     Dates: start: 20130416, end: 20130423
  3. PROACTIV DEEP CLEANSING WASH [Suspect]
     Indication: ACNE
     Dosage: DERMAL
     Dates: start: 20130416, end: 20130423

REACTIONS (3)
  - Hypersensitivity [None]
  - Urticaria [None]
  - Thermal burn [None]
